FAERS Safety Report 16272324 (Version 2)
Quarter: 2020Q2

REPORT INFORMATION
  Report Type: Spontaneous
  Country: US (occurrence: US)
  Receive Date: 20190503
  Receipt Date: 20200407
  Transmission Date: 20200713
  Serious: Yes (Other)
  Sender: FDA-Public Use
  Company Number: US-ASTRAZENECA-2019SE60100

PATIENT
  Age: 20055 Day
  Sex: Female
  Weight: 72.6 kg

DRUGS (40)
  1. PREVACID 24 HR [Suspect]
     Active Substance: LANSOPRAZOLE
     Route: 065
     Dates: start: 200204, end: 200311
  2. TOPROL XL [Concomitant]
     Active Substance: METOPROLOL SUCCINATE
     Dates: start: 20020802
  3. METOPROLOL TARTRATE. [Concomitant]
     Active Substance: METOPROLOL TARTRATE
     Dates: start: 20131010, end: 20150804
  4. NEXIUM [Suspect]
     Active Substance: ESOMEPRAZOLE MAGNESIUM
     Indication: GASTROOESOPHAGEAL REFLUX DISEASE
     Route: 048
     Dates: start: 20030323
  5. NEXIUM 24HR [Suspect]
     Active Substance: ESOMEPRAZOLE MAGNESIUM
     Route: 048
     Dates: start: 200204, end: 200311
  6. DIOVAN [Concomitant]
     Active Substance: VALSARTAN
     Dates: start: 20000706
  7. FOLIC ACID. [Concomitant]
     Active Substance: FOLIC ACID
     Dates: start: 20030527
  8. CLINDAMYCIN. [Concomitant]
     Active Substance: CLINDAMYCIN
     Dates: start: 20101221
  9. PRILOSEC [Suspect]
     Active Substance: OMEPRAZOLE MAGNESIUM
     Indication: GASTROOESOPHAGEAL REFLUX DISEASE
     Dosage: GENERIC
     Route: 065
     Dates: start: 20140708, end: 20141231
  10. PREMARIN [Concomitant]
     Active Substance: ESTROGENS, CONJUGATED
     Indication: MENOPAUSE
     Dates: start: 20140504, end: 20140731
  11. GABAPENTIN. [Concomitant]
     Active Substance: GABAPENTIN
     Indication: PAIN MANAGEMENT
     Dates: start: 20131001, end: 20140701
  12. ORUVAIL [Concomitant]
     Active Substance: KETOPROFEN
  13. NAPROXEN. [Concomitant]
     Active Substance: NAPROXEN
     Dates: start: 20030313
  14. NEXIUM [Suspect]
     Active Substance: ESOMEPRAZOLE MAGNESIUM
     Indication: GASTROOESOPHAGEAL REFLUX DISEASE
     Route: 048
     Dates: start: 20030323, end: 20031126
  15. AMLODIPINE [Concomitant]
     Active Substance: AMLODIPINE BESYLATE
     Indication: HYPERTENSION
     Dates: start: 20120731, end: 20130101
  16. CELEBREX [Concomitant]
     Active Substance: CELECOXIB
  17. CEPHALEXIN. [Concomitant]
     Active Substance: CEPHALEXIN
     Dates: start: 20000612
  18. SIMVASTATIN. [Concomitant]
     Active Substance: SIMVASTATIN
     Dates: start: 20091209
  19. DOXYCYCLINE HYCLATE. [Concomitant]
     Active Substance: DOXYCYCLINE HYCLATE
     Dates: start: 20120920, end: 20150615
  20. SOLIFENACIN [Concomitant]
     Active Substance: SOLIFENACIN
     Dates: start: 20131010, end: 20141012
  21. PREVACID [Suspect]
     Active Substance: LANSOPRAZOLE
     Indication: GASTROOESOPHAGEAL REFLUX DISEASE
     Route: 065
     Dates: start: 200204, end: 200311
  22. CIPROFLAXIN [Concomitant]
     Active Substance: CIPROFLOXACIN
     Indication: INFECTION
     Dates: start: 20061119, end: 20061219
  23. NASONEX [Concomitant]
     Active Substance: MOMETASONE FUROATE
     Indication: ASTHMA
     Dates: start: 20070407, end: 20070507
  24. PROVIGIL [Concomitant]
     Active Substance: MODAFINIL
  25. ACETAMINOPHEN-COD [Concomitant]
     Active Substance: ACETAMINOPHEN\CODEINE PHOSPHATE
     Dates: start: 20000612
  26. METHOTREXATE. [Concomitant]
     Active Substance: METHOTREXATE
     Dates: start: 20030527
  27. PREDNISONE. [Concomitant]
     Active Substance: PREDNISONE
     Dates: start: 20030508
  28. BUPROPION. [Concomitant]
     Active Substance: BUPROPION
     Dates: start: 20090923
  29. PREVACID [Suspect]
     Active Substance: LANSOPRAZOLE
     Indication: GASTROOESOPHAGEAL REFLUX DISEASE
     Route: 048
     Dates: start: 20021207
  30. PAXIL [Concomitant]
     Active Substance: PAROXETINE HYDROCHLORIDE
  31. MEDROXYPROGESTERONE [Concomitant]
     Active Substance: MEDROXYPROGESTERONE
     Dates: start: 20011123
  32. ZITHROMAX [Concomitant]
     Active Substance: AZITHROMYCIN DIHYDRATE
     Dates: start: 20011123
  33. CHLORZOXAZONE. [Concomitant]
     Active Substance: CHLORZOXAZONE
     Dates: start: 20030313
  34. ATENOLOL. [Concomitant]
     Active Substance: ATENOLOL
     Dates: start: 20031029
  35. NEXIUM [Suspect]
     Active Substance: ESOMEPRAZOLE MAGNESIUM
     Indication: GASTROOESOPHAGEAL REFLUX DISEASE
     Route: 048
     Dates: start: 200204, end: 200311
  36. FEXOFENADINE [Concomitant]
     Active Substance: FEXOFENADINE HYDROCHLORIDE
     Dates: start: 20101221
  37. PRILOSEC [Suspect]
     Active Substance: OMEPRAZOLE MAGNESIUM
     Indication: GASTROOESOPHAGEAL REFLUX DISEASE
     Route: 048
     Dates: start: 200204, end: 200311
  38. PREVACID [Suspect]
     Active Substance: LANSOPRAZOLE
     Indication: GASTROOESOPHAGEAL REFLUX DISEASE
     Route: 065
     Dates: start: 20000313, end: 20020410
  39. LIPITOR [Concomitant]
     Active Substance: ATORVASTATIN CALCIUM
  40. TOLTERODINE [Concomitant]
     Active Substance: TOLTERODINE
     Dates: start: 20130418, end: 20150615

REACTIONS (4)
  - Chronic kidney disease [Not Recovered/Not Resolved]
  - Nephrogenic anaemia [Unknown]
  - Hyperparathyroidism secondary [Unknown]
  - Renal failure [Unknown]

NARRATIVE: CASE EVENT DATE: 20081201
